FAERS Safety Report 10694917 (Version 1)
Quarter: 2015Q1

REPORT INFORMATION
  Report Type: Spontaneous
  Country: US (occurrence: None)
  Receive Date: 20150105
  Receipt Date: 20150105
  Transmission Date: 20150721
  Serious: Yes (Other)
  Sender: FDA-Public Use
  Company Number: None

PATIENT
  Sex: Male
  Weight: 73.48 kg

DRUGS (2)
  1. FENTANYL. [Suspect]
     Active Substance: FENTANYL
     Indication: PAIN
     Dosage: 75 MCG/ HR  PATCH CHANGE EVERY 72 HRS
     Dates: start: 20140815
  2. CALCIUM VITAMIN D [Concomitant]
     Active Substance: CALCIUM\VITAMIN D

REACTIONS (9)
  - Erythema [None]
  - Amnesia [None]
  - Skin irritation [None]
  - Macular degeneration [None]
  - Product difficult to remove [None]
  - Product adhesion issue [None]
  - Unevaluable event [None]
  - Dyspnoea [None]
  - Pain [None]
